FAERS Safety Report 18986295 (Version 1)
Quarter: 2021Q1

REPORT INFORMATION
  Report Type: Spontaneous
  Country: US (occurrence: US)
  Receive Date: 20210308
  Receipt Date: 20210308
  Transmission Date: 20210420
  Serious: Yes (Death)
  Sender: FDA-Public Use
  Company Number: None

PATIENT
  Age: 59 Year
  Sex: Female

DRUGS (10)
  1. RAYALDEE [Suspect]
     Active Substance: CALCIFEDIOL
     Indication: PRODUCT USED FOR UNKNOWN INDICATION
     Route: 048
     Dates: start: 20210105
  2. HUMALOG [Concomitant]
     Active Substance: INSULIN LISPRO
  3. MYCOPHENOLATE [Concomitant]
     Active Substance: MYCOPHENOLIC ACID
  4. CYCLOSPORINE. [Concomitant]
     Active Substance: CYCLOSPORINE
  5. FUROSEMIDE. [Concomitant]
     Active Substance: FUROSEMIDE
  6. DIALYVITE [Concomitant]
     Active Substance: ASCORBIC ACID\BIOTIN\CALCIUM PANTOTHENATE\COBALAMIN\FOLIC ACID\NIACINAMIDE\PYRIDOXINE HYDROCHLORIDE\RIBOFLAVIN\THIAMINE MONONITRATE
  7. CALCIUM [Concomitant]
     Active Substance: CALCIUM
  8. LOSARTAN. [Concomitant]
     Active Substance: LOSARTAN
  9. PANTOPRAZOLE [Concomitant]
     Active Substance: PANTOPRAZOLE
  10. CEFDINIR. [Concomitant]
     Active Substance: CEFDINIR

REACTIONS (1)
  - Death [None]

NARRATIVE: CASE EVENT DATE: 20210226
